FAERS Safety Report 22235835 (Version 1)
Quarter: 2023Q2

REPORT INFORMATION
  Report Type: Spontaneous
  Country: GB (occurrence: GB)
  Receive Date: 20230420
  Receipt Date: 20230420
  Transmission Date: 20230721
  Serious: Yes (Other)
  Sender: FDA-Public Use
  Company Number: GB-MHRA-MED-202304092151211470-HKPFQ

PATIENT
  Age: 22 Year
  Sex: Female
  Weight: 65 kg

DRUGS (2)
  1. PROPRANOLOL [Suspect]
     Active Substance: PROPRANOLOL HYDROCHLORIDE
     Indication: Headache
     Dosage: 240 MILLIGRAM DAILY;  MORNING AND NIGHT;
     Route: 065
     Dates: start: 20220907, end: 202301
  2. PROPRANOLOL [Suspect]
     Active Substance: PROPRANOLOL HYDROCHLORIDE
     Indication: Migraine

REACTIONS (5)
  - Depression [Unknown]
  - Sleep terror [Recovering/Resolving]
  - Amnesia [Recovered/Resolved with Sequelae]
  - Paraesthesia [Recovered/Resolved]
  - Medication error [Unknown]
